FAERS Safety Report 25539771 (Version 1)
Quarter: 2025Q3

REPORT INFORMATION
  Report Type: Spontaneous
  Country: GB (occurrence: GB)
  Receive Date: 20250710
  Receipt Date: 20250710
  Transmission Date: 20251020
  Serious: Yes (Hospitalization, Other)
  Sender: DR REDDYS
  Company Number: None

PATIENT
  Age: 64 Year
  Sex: Male
  Weight: 72 kg

DRUGS (17)
  1. CHLORPROMAZINE [Suspect]
     Active Substance: CHLORPROMAZINE
     Indication: Ill-defined disorder
     Dosage: HALF TABLET AT NIGHT
     Dates: start: 20250321
  2. SANDO-K [Concomitant]
     Indication: Ill-defined disorder
     Dosage: 2 TO BE TAKEN THREE TIMES DAILY FOR 5 DAYS (IVE...
     Dates: start: 20250430, end: 20250505
  3. CODEINE PHOSPHATE [Concomitant]
     Active Substance: CODEINE PHOSPHATE
     Indication: Ill-defined disorder
     Dates: start: 20250502, end: 20250509
  4. ENSURE [Concomitant]
     Active Substance: AMINO ACIDS\DEXTROSE\ELECTROLYTES NOS\SOYBEAN OIL\VITAMINS
     Indication: Ill-defined disorder
     Dosage: ONE TO BE TAKEN TWICE A DAY
     Dates: start: 20250523, end: 20250620
  5. ENSURE [Concomitant]
     Active Substance: AMINO ACIDS\DEXTROSE\ELECTROLYTES NOS\SOYBEAN OIL\VITAMINS
     Dosage: ONE TO BE TAKEN TWICE A DAY
     Dates: start: 20250326
  6. DOXYCYCLINE [Concomitant]
     Active Substance: DOXYCYCLINE
     Indication: Ill-defined disorder
     Dates: start: 20250613, end: 20250620
  7. LUSTRAL [Concomitant]
     Active Substance: SERTRALINE HYDROCHLORIDE
     Indication: Ill-defined disorder
     Dosage: ONE DAILY
     Dates: start: 20250206
  8. ZOPICLONE [Concomitant]
     Active Substance: ZOPICLONE
     Indication: Ill-defined disorder
     Dosage: TAKE ONE AT NIGHT
     Dates: start: 20250624
  9. BISOPROLOL [Concomitant]
     Active Substance: BISOPROLOL
     Indication: Ill-defined disorder
     Dosage: TAKE ONE DAILY FOR RATE CONTROL - A-FIB - CHADV...
     Dates: start: 20250206
  10. POTASSIUM BICARBONATE\SODIUM ALGINATE [Concomitant]
     Active Substance: POTASSIUM BICARBONATE\SODIUM ALGINATE
     Indication: Ill-defined disorder
     Dates: start: 20250206
  11. MORPHINE SULFATE [Concomitant]
     Active Substance: MORPHINE SULFATE
     Indication: Ill-defined disorder
     Dates: start: 20250206
  12. ACETAMINOPHEN [Concomitant]
     Active Substance: ACETAMINOPHEN
     Indication: Ill-defined disorder
     Dosage: 2 TO BE TAKEN FOUR TIMES DAILY REGULARLY - REDU...
     Dates: start: 20250206
  13. ALBUTEROL [Concomitant]
     Active Substance: ALBUTEROL
     Indication: Ill-defined disorder
     Dates: start: 20250214
  14. LOPERAMIDE [Concomitant]
     Active Substance: LOPERAMIDE
     Indication: Ill-defined disorder
     Dates: start: 20250321
  15. FUROSEMIDE [Concomitant]
     Active Substance: FUROSEMIDE
     Indication: Ill-defined disorder
     Dosage: TAKE ONE EACH MORNING - REVIEW AFTER 4-6 WEEKS ...
     Dates: start: 20250324
  16. METOCLOPRAMIDE [Concomitant]
     Active Substance: METOCLOPRAMIDE
     Indication: Hiccups
     Dates: start: 20250324, end: 20250701
  17. OMEPRAZOLE [Concomitant]
     Active Substance: OMEPRAZOLE
     Indication: Ill-defined disorder
     Dosage: ONE IN THE MORNING
     Dates: start: 20250417

REACTIONS (2)
  - Hypokinesia [Recovered/Resolved]
  - Extrapyramidal disorder [Unknown]
